FAERS Safety Report 10124962 (Version 2)
Quarter: 2015Q1

REPORT INFORMATION
  Report Type: Other
  Country: US (occurrence: US)
  Receive Date: 20140427
  Receipt Date: 20150227
  Transmission Date: 20150720
  Serious: Yes (Hospitalization, Other)
  Sender: FDA-Public Use
  Company Number: US-GSKPPD-2014GSK027614

PATIENT
  Age: 45 Year
  Sex: Male

DRUGS (7)
  1. RAMIPRIL. [Concomitant]
     Active Substance: RAMIPRIL
  2. EPTIFIBATIDE [Concomitant]
     Active Substance: EPTIFIBATIDE
     Route: 041
     Dates: start: 20031113
  3. NITROGLYCERIN. [Concomitant]
     Active Substance: NITROGLYCERIN
     Route: 041
     Dates: start: 20031113
  4. METOPROLOL TARTRATE. [Concomitant]
     Active Substance: METOPROLOL TARTRATE
  5. ENOXAPARIN SODIUM. [Concomitant]
     Active Substance: ENOXAPARIN SODIUM
     Dosage: 1MG KG EVERY 12 HOURS
     Route: 058
     Dates: start: 20031113
  6. ASPIRIN. [Concomitant]
     Active Substance: ASPIRIN
  7. AVANDIA [Suspect]
     Active Substance: ROSIGLITAZONE MALEATE
     Indication: DIABETES MELLITUS
     Dosage: DATES OF AVANDIA USE COULD NOT BE CONFIRMED IN RECORDS REVIEWED
     Route: 048

REACTIONS (1)
  - Acute myocardial infarction [Recovered/Resolved]

NARRATIVE: CASE EVENT DATE: 20031113
